FAERS Safety Report 8518753-X (Version None)
Quarter: 2012Q3

REPORT INFORMATION
  Report Type: 
  Country: None (occurrence: None)
  Receive Date: 20120718
  Receipt Date: 20120711
  Transmission Date: 20120928
  Serious: Yes (Other)
  Sender: FDA-Public Use
  Company Number: PHHY2012BR060572

PATIENT
  Sex: Female

DRUGS (6)
  1. FORMOTEROL FUMARATE [Suspect]
     Indication: ASTHMA
     Dosage: UNK UKN, BID
  2. METICORTEN [Concomitant]
     Indication: ASTHMA
     Dosage: 1 TABLET IN THE MORNING
     Route: 048
  3. SIMVASTATIN [Concomitant]
     Indication: BLOOD CHOLESTEROL
     Dosage: 1 DF, QD
     Route: 048
  4. BEROTEC [Concomitant]
     Indication: ASTHMA
     Dosage: UNK UKN, PRN
  5. ATROVENT [Concomitant]
     Indication: ASTHMA
     Dosage: UNK UKN, PRN
  6. CLONAZEPAM [Concomitant]
     Indication: ANXIETY
     Dosage: 1 DF, QD
     Route: 048

REACTIONS (2)
  - HYPERTENSION [None]
  - NEOPLASM MALIGNANT [None]
